FAERS Safety Report 7216158-5 (Version None)
Quarter: 2011Q1

REPORT INFORMATION
  Report Type: 
  Country: None (occurrence: None)
  Receive Date: 20110107
  Receipt Date: 20101216
  Transmission Date: 20110831
  Serious: No
  Sender: FDA-Public Use
  Company Number: US-B.I. PHARMACEUTICALS,INC./RIDGEFIELD-2010-BP-14815BP

PATIENT
  Sex: Male

DRUGS (6)
  1. BENICAR [Concomitant]
     Indication: BLOOD CHOLESTEROL INCREASED
     Route: 048
  2. NOVOLOG [Concomitant]
     Indication: DIABETES MELLITUS
     Route: 048
  3. FOLIC ACID [Concomitant]
     Indication: SUPPLEMENTATION THERAPY
     Route: 048
  4. PRADAXA [Suspect]
     Indication: ATRIAL FIBRILLATION
     Dosage: 300 MG
     Route: 048
     Dates: start: 20101207
  5. METFORMIN HYDROCHLORIDE [Concomitant]
     Indication: DIABETES MELLITUS
     Route: 048
  6. MULTAQ [Concomitant]
     Indication: ATRIAL FIBRILLATION
     Dosage: 800 MG
     Route: 048
     Dates: start: 20101209

REACTIONS (4)
  - COUGH [None]
  - CHOKING [None]
  - RECTAL HAEMORRHAGE [None]
  - VOMITING [None]
